FAERS Safety Report 5821484-8 (Version None)
Quarter: 2008Q3

REPORT INFORMATION
  Report Type: 
  Country: None (occurrence: None)
  Receive Date: 20080724
  Receipt Date: 20080717
  Transmission Date: 20090109
  Serious: Yes (Hospitalization)
  Sender: FDA-Public Use
  Company Number: B0530527A

PATIENT
  Age: 56 Year
  Sex: Male

DRUGS (2)
  1. TRIZIVIR [Suspect]
     Indication: HIV INFECTION
     Dates: start: 20051212, end: 20080609
  2. GEMFIBROZIL [Concomitant]

REACTIONS (3)
  - ANGINA PECTORIS [None]
  - CORONARY ANGIOPLASTY [None]
  - CORONARY ARTERIAL STENT INSERTION [None]
